FAERS Safety Report 9676245 (Version 1)
Quarter: 2013Q4

REPORT INFORMATION
  Report Type: Spontaneous
  Country: US (occurrence: US)
  Receive Date: 20131107
  Receipt Date: 20131107
  Transmission Date: 20140711
  Serious: No
  Sender: FDA-Public Use
  Company Number: US-ENDO PHARMACEUTICALS INC.-METC20120005

PATIENT
  Age: 56 Year
  Sex: Female

DRUGS (1)
  1. METHOCARBAMOL TABLETS 500MG [Suspect]
     Indication: PRODUCT USED FOR UNKNOWN INDICATION
     Dosage: 500 MG
     Route: 048
     Dates: start: 201208, end: 201208

REACTIONS (2)
  - Nightmare [Unknown]
  - Intentional drug misuse [Recovered/Resolved]
